FAERS Safety Report 4707211-6 (Version None)
Quarter: 2005Q3

REPORT INFORMATION
  Report Type: 
  Country: None (occurrence: None)
  Receive Date: 20050701
  Receipt Date: 20050701
  Transmission Date: 20060218
  Serious: Yes (Hospitalization)
  Sender: FDA-Public Use
  Company Number: None

PATIENT
  Sex: Male
  Weight: 35.9702 kg

DRUGS (2)
  1. BACTRIM DS [Suspect]
     Indication: PROSTATITIS
     Dosage: DS    BID   ORAL
     Route: 048
     Dates: start: 20050420, end: 20050426
  2. BACTRIM DS [Suspect]
     Indication: URINARY TRACT INFECTION
     Dosage: DS    BID   ORAL
     Route: 048
     Dates: start: 20050420, end: 20050426

REACTIONS (9)
  - CHILLS [None]
  - DYSURIA [None]
  - HYPERHIDROSIS [None]
  - JAUNDICE CHOLESTATIC [None]
  - LIVER DISORDER [None]
  - LIVER FUNCTION TEST ABNORMAL [None]
  - NAUSEA [None]
  - OBSTRUCTION [None]
  - VOMITING [None]
